FAERS Safety Report 15173148 (Version 1)
Quarter: 2018Q3

REPORT INFORMATION
  Report Type: Report from Study
  Country: US (occurrence: US)
  Receive Date: 20180720
  Receipt Date: 20180720
  Transmission Date: 20181010
  Serious: Yes (Hospitalization)
  Sender: FDA-Public Use
  Company Number: US-BAYER-2018-130441

PATIENT
  Age: 40 Year
  Sex: Male

DRUGS (2)
  1. STIVARGA [Suspect]
     Active Substance: REGORAFENIB
     Indication: COLON CANCER
     Dosage: 160 MG, DAILY FOR 21 DAYS OFF 7
     Route: 048
     Dates: start: 201806
  2. TYLENOL [Concomitant]
     Active Substance: ACETAMINOPHEN
     Dosage: 325 MG

REACTIONS (7)
  - Pain [None]
  - Syncope [None]
  - Palmar-plantar erythrodysaesthesia syndrome [None]
  - Oropharyngeal pain [Recovered/Resolved]
  - Groin pain [None]
  - Pain in extremity [None]
  - Pain [Recovered/Resolved]

NARRATIVE: CASE EVENT DATE: 2018
